FAERS Safety Report 5479655-9 (Version None)
Quarter: 2007Q4

REPORT INFORMATION
  Report Type: 
  Country: None (occurrence: None)
  Receive Date: 20071008
  Receipt Date: 20071002
  Transmission Date: 20080405
  Serious: Yes (Other)
  Sender: FDA-Public Use
  Company Number: B0475422A

PATIENT
  Age: 74 Year
  Sex: Female
  Weight: 70 kg

DRUGS (10)
  1. AVANDIA [Suspect]
     Dosage: 4MG PER DAY
     Route: 048
     Dates: start: 20060701
  2. GLURENORM [Concomitant]
     Route: 065
  3. ANAFRANIL [Concomitant]
     Dosage: 25MG PER DAY
     Route: 065
     Dates: start: 19850101
  4. LYSANXIA [Concomitant]
     Dosage: 10MG PER DAY
     Route: 065
     Dates: start: 19900101
  5. BARNIDIPINE HYDROCHLORIDE [Concomitant]
     Dosage: 20MG PER DAY
     Route: 065
     Dates: start: 20040301
  6. LIPANTHYL [Concomitant]
     Dosage: 267MG PER DAY
     Route: 065
     Dates: start: 19900101
  7. CRESTOR [Concomitant]
     Route: 065
  8. MAGNESIUM SULFATE [Concomitant]
     Dosage: 10MG PER DAY
     Dates: start: 20060201
  9. SENOKOT [Concomitant]
     Route: 065
  10. MYOLASTAN [Concomitant]
     Route: 065

REACTIONS (3)
  - ANAEMIA [None]
  - LEUKOPENIA [None]
  - NEUTROPENIA [None]
